FAERS Safety Report 6932642-3 (Version None)
Quarter: 2010Q3

REPORT INFORMATION
  Report Type: 
  Country: None (occurrence: None)
  Receive Date: 20100817
  Receipt Date: 20100727
  Transmission Date: 20110219
  Serious: Yes (Other)
  Sender: FDA-Public Use
  Company Number: JPI-P-009797

PATIENT
  Age: 33 Year
  Sex: Female
  Weight: 56.6996 kg

DRUGS (5)
  1. XYREM [Suspect]
     Indication: CATAPLEXY
     Dosage: SEE IMAGE
     Route: 048
     Dates: start: 20100101, end: 20100101
  2. XYREM [Suspect]
     Indication: CATAPLEXY
     Dosage: SEE IMAGE
     Route: 048
     Dates: start: 20100114, end: 20100101
  3. XYREM [Suspect]
     Indication: CATAPLEXY
     Dosage: SEE IMAGE
     Route: 048
     Dates: start: 20100101, end: 20100401
  4. XYREM [Suspect]
     Indication: CATAPLEXY
     Dosage: SEE IMAGE
     Route: 048
     Dates: start: 20100101, end: 20100702
  5. METHYLPHENIDATE [Concomitant]

REACTIONS (9)
  - DIARRHOEA [None]
  - FREQUENT BOWEL MOVEMENTS [None]
  - HEADACHE [None]
  - MALAISE [None]
  - PLATELET COUNT DECREASED [None]
  - RETCHING [None]
  - SOMNAMBULISM [None]
  - URINARY INCONTINENCE [None]
  - WEIGHT DECREASED [None]
